FAERS Safety Report 9759216 (Version 1)
Quarter: 2013Q4

REPORT INFORMATION
  Report Type: Spontaneous
  Country: US (occurrence: None)
  Receive Date: 20131216
  Receipt Date: 20131216
  Transmission Date: 20140711
  Serious: Yes (Hospitalization)
  Sender: FDA-Public Use
  Company Number: 163-21880-12110288(0)

PATIENT
  Age: 57 Year
  Sex: Female

DRUGS (2)
  1. REVLIMID(LENALIDOMIDE)(CAPSULES) [Suspect]
     Indication: PLASMA CELL MYELOMA
     Dosage: 5 MG, 1 IN 1 D, PO?
  2. ZOMETA (ZOLEDRONIC ACID) (UNKNOWN) [Suspect]
     Indication: PRODUCT USED FOR UNKNOWN INDICATION
     Dosage: 3 MG, 1 IN 1 M, UNK?

REACTIONS (2)
  - Renal failure [None]
  - Urinary tract infection [None]
